FAERS Safety Report 15366147 (Version 1)
Quarter: 2018Q3

REPORT INFORMATION
  Report Type: Spontaneous
  Country: IN (occurrence: IN)
  Receive Date: 20180910
  Receipt Date: 20180910
  Transmission Date: 20181010
  Serious: Yes (Hospitalization)
  Sender: FDA-Public Use
  Company Number: IN-MYLANLABS-2018M1065955

PATIENT
  Age: 56 Year
  Sex: Male

DRUGS (2)
  1. RISPERIDONE. [Concomitant]
     Active Substance: RISPERIDONE
     Indication: SCHIZOPHRENIA
     Dosage: 4 MG, IN DIVIDED DOSES
     Route: 065
  2. CLOZAPINE. [Suspect]
     Active Substance: CLOZAPINE
     Indication: SCHIZOPHRENIA
     Dosage: 200 MG,(INITIAL DOSE NOT STATED, THE DOSE GRADUALLY INCREASED UP TO 200 MG IN TWO WEEKS AFTER INITIA
     Route: 065

REACTIONS (5)
  - Sedation [Unknown]
  - Bicytopenia [Recovered/Resolved]
  - Hypoplastic anaemia [Recovered/Resolved]
  - Cystitis klebsiella [Recovered/Resolved]
  - Salivary hypersecretion [Unknown]
